FAERS Safety Report 8460510 (Version 4)
Quarter: 2012Q4

REPORT INFORMATION
  Report Type: 
  Country: FR (occurrence: FR)
  Receive Date: 20120315
  Receipt Date: 20120904
  Transmission Date: 20130627
  Serious: Yes (Hospitalization, Other)
  Sender: FDA-Public Use
  Company Number: FR-PFIZER INC-2012065948

PATIENT
  Age: 3 Year
  Sex: Male
  Weight: 11 kg

DRUGS (2)
  1. ADVIL ENFANTS ET NOURRISSONS [Suspect]
     Indication: PYREXIA
     Dosage: 1 weight/dose
     Dates: start: 20120220, end: 20120220
  2. PARACETAMOL [Concomitant]
     Dosage: UNK
     Dates: start: 20120220, end: 20120220

REACTIONS (5)
  - Poor quality drug administered [Unknown]
  - Urinary retention [Recovered/Resolved]
  - Bladder dilatation [Recovered/Resolved]
  - Urine output decreased [Recovered/Resolved]
  - Constipation [Unknown]
